FAERS Safety Report 9681328 (Version 2)
Quarter: 2019Q1

REPORT INFORMATION
  Report Type: Report from Study
  Country: US (occurrence: US)
  Receive Date: 20131111
  Receipt Date: 20190219
  Transmission Date: 20190418
  Serious: Yes (Other)
  Sender: FDA-Public Use
  Company Number: US-SA-2013SA110891

PATIENT
  Age: 59 Year
  Sex: Female

DRUGS (1)
  1. SEVELAMER CARBONATE. [Suspect]
     Active Substance: SEVELAMER CARBONATE
     Indication: CHRONIC KIDNEY DISEASE
     Dosage: 3200 MG,TID
     Route: 048

REACTIONS (9)
  - Nausea [Unknown]
  - Incarcerated hernia [Unknown]
  - Dyspepsia [Unknown]
  - Necrosis [Unknown]
  - Amyloidosis [Unknown]
  - Gastrointestinal mucosal disorder [Unknown]
  - Ischaemia [Unknown]
  - Vomiting [Unknown]
  - Crystal deposit intestine [Unknown]
